FAERS Safety Report 17220764 (Version 10)
Quarter: 2020Q2

REPORT INFORMATION
  Report Type: Spontaneous
  Country: RU (occurrence: RU)
  Receive Date: 20191231
  Receipt Date: 20200505
  Transmission Date: 20200713
  Serious: Yes (Death, Hospitalization)
  Sender: FDA-Public Use
  Company Number: RU-CELGENEUS-RUS-20191208818

PATIENT
  Age: 68 Year
  Sex: Female
  Weight: 88.5 kg

DRUGS (20)
  1. VENETOCLAX. [Concomitant]
     Active Substance: VENETOCLAX
     Dosage: 400 MILLIGRAM
     Route: 048
     Dates: start: 20180223, end: 20191211
  2. VALSARTAN. [Concomitant]
     Active Substance: VALSARTAN
     Indication: HYPERTENSION
     Dosage: 320 MILLIGRAM
     Route: 048
     Dates: start: 201709
  3. MOXONIDINE [Concomitant]
     Active Substance: MOXONIDINE
     Indication: HYPERTENSION
     Dosage: .2 MILLIGRAM
     Route: 048
     Dates: start: 201709
  4. AZACITIDINE. [Suspect]
     Active Substance: AZACITIDINE
     Indication: ACUTE MYELOID LEUKAEMIA
     Dosage: 75 MILLIGRAM/SQ. METER
     Route: 058
     Dates: start: 20180110, end: 20191126
  5. AZACITIDINE. [Suspect]
     Active Substance: AZACITIDINE
     Dosage: 75 MILLIGRAM/SQ. METER
     Route: 058
     Dates: start: 20191223
  6. VENETOCLAX. [Concomitant]
     Active Substance: VENETOCLAX
     Indication: ACUTE MYELOID LEUKAEMIA
     Dosage: 100 MILLIGRAM
     Route: 048
     Dates: start: 20180110, end: 20180110
  7. ALLOPURINOL. [Concomitant]
     Active Substance: ALLOPURINOL
     Indication: PROPHYLAXIS
     Dosage: 600 MILLIGRAM
     Route: 048
     Dates: start: 20180109, end: 20180119
  8. VENETOCLAX. [Concomitant]
     Active Substance: VENETOCLAX
     Dosage: 200 MILLIGRAM
     Route: 048
     Dates: start: 20180111, end: 20180111
  9. VENETOCLAX. [Concomitant]
     Active Substance: VENETOCLAX
     Dosage: 200 MILLIGRAM
     Route: 048
     Dates: start: 20180213, end: 20180222
  10. LATRAN [Concomitant]
     Dosage: INTERMITTENTLY
     Route: 065
     Dates: start: 20180404
  11. ALLOPURINOL. [Concomitant]
     Active Substance: ALLOPURINOL
     Indication: PROPHYLAXIS
     Dosage: 300 MILLIGRAM
     Route: 048
     Dates: start: 20181223
  12. NORMAL SALINE [Concomitant]
     Active Substance: SODIUM CHLORIDE
     Indication: PROPHYLAXIS
     Route: 041
     Dates: start: 20180109, end: 20180119
  13. XARELTO [Concomitant]
     Active Substance: RIVAROXABAN
     Dosage: 20 MILLIGRAM
     Route: 048
     Dates: start: 20180731, end: 20190731
  14. XARELTO [Concomitant]
     Active Substance: RIVAROXABAN
     Indication: POST THROMBOTIC SYNDROME
     Dosage: 60 MILLIGRAM
     Route: 048
     Dates: start: 20180513, end: 20180730
  15. AMLODIPINE [Concomitant]
     Active Substance: AMLODIPINE BESYLATE
     Indication: HYPERTENSION
     Dosage: 2.5 MILLIGRAM
     Route: 048
     Dates: start: 201709
  16. VENETOCLAX. [Concomitant]
     Active Substance: VENETOCLAX
     Dosage: 400 MILLIGRAM
     Route: 048
     Dates: start: 20180112, end: 20180402
  17. HYPOTHIAZID [Concomitant]
     Active Substance: HYDROCHLOROTHIAZIDE
     Indication: HYPERTENSION
     Dosage: 12.5 MILLIGRAM
     Route: 048
     Dates: start: 201709
  18. BEROTEC N [Concomitant]
     Active Substance: FENOTEROL HYDROBROMIDE
     Indication: ASTHMA
     Route: 055
     Dates: start: 2014
  19. LATRAN [Concomitant]
     Indication: PROPHYLAXIS OF NAUSEA AND VOMITING
     Dosage: INTERMITTENTLY
     Route: 065
     Dates: start: 20180306
  20. VENETOCLAX. [Concomitant]
     Active Substance: VENETOCLAX
     Dosage: 400 MILLIGRAM
     Route: 048
     Dates: start: 20181219

REACTIONS (3)
  - Injection site extravasation [Recovered/Resolved]
  - Haemorrhagic vasculitis [Recovered/Resolved]
  - Pneumonia [Fatal]

NARRATIVE: CASE EVENT DATE: 20191212
